FAERS Safety Report 14942736 (Version 1)
Quarter: 2018Q2

REPORT INFORMATION
  Report Type: Spontaneous
  Country: US (occurrence: US)
  Receive Date: 20180528
  Receipt Date: 20180528
  Transmission Date: 20180711
  Serious: Yes (Life-Threatening, Hospitalization)
  Sender: FDA-Public Use
  Company Number: US-STRIDES ARCOLAB LIMITED-2017SP014516

PATIENT

DRUGS (2)
  1. COUMADIN [Suspect]
     Active Substance: WARFARIN SODIUM
     Indication: PRODUCT USED FOR UNKNOWN INDICATION
     Dosage: UNK
     Route: 065
  2. HYDRALAZINE HCL [Suspect]
     Active Substance: HYDRALAZINE HYDROCHLORIDE
     Indication: HYPERTENSION
     Dosage: 100 MG, TID
     Route: 065

REACTIONS (7)
  - Cardiac tamponade [Recovered/Resolved]
  - Pyrexia [Recovered/Resolved]
  - Pericarditis [Recovered/Resolved]
  - Lupus-like syndrome [Recovered/Resolved]
  - Dyspnoea exertional [Recovered/Resolved]
  - Pericardial effusion [Recovered/Resolved]
  - Pleuritic pain [Recovered/Resolved]
